FAERS Safety Report 6824289-4 (Version None)
Quarter: 2010Q3

REPORT INFORMATION
  Report Type: 
  Country: None (occurrence: None)
  Receive Date: 20100708
  Receipt Date: 20070108
  Transmission Date: 20110219
  Serious: No
  Sender: FDA-Public Use
  Company Number: US-PFIZER INC-2006126515

PATIENT
  Sex: Female
  Weight: 77.11 kg

DRUGS (2)
  1. CHANTIX [Suspect]
     Indication: SMOKING CESSATION THERAPY
     Dosage: FREQUENCY: BID INTERVAL: EVERY DAY
     Route: 048
     Dates: start: 20061004
  2. FLUOXETINE [Concomitant]

REACTIONS (2)
  - EUPHORIC MOOD [None]
  - MYDRIASIS [None]
